FAERS Safety Report 25776257 (Version 1)
Quarter: 2025Q3

REPORT INFORMATION
  Report Type: Spontaneous
  Country: US (occurrence: US)
  Receive Date: 20250909
  Receipt Date: 20250909
  Transmission Date: 20251020
  Serious: No
  Sender: DOMPE FARMACEUTICI
  Company Number: US-FARMAPROD-202502-0513

PATIENT
  Sex: Female

DRUGS (15)
  1. OXERVATE [Suspect]
     Active Substance: CENEGERMIN-BKBJ
     Indication: Neurotrophic keratopathy
     Route: 047
     Dates: start: 20250203
  2. FEMRING [Concomitant]
     Active Substance: ESTRADIOL ACETATE
  3. CALCITRIOL [Concomitant]
     Active Substance: CALCITRIOL
  4. FUROSEMIDE [Concomitant]
     Active Substance: FUROSEMIDE
  5. VALACYCLOVIR [Concomitant]
     Active Substance: VALACYCLOVIR HYDROCHLORIDE
  6. VITAMIN E-400 [Concomitant]
  7. STIOLTO RESPIMAT [Concomitant]
     Active Substance: OLODATEROL HYDROCHLORIDE\TIOTROPIUM BROMIDE MONOHYDRATE
  8. BIOTIN [Concomitant]
     Active Substance: BIOTIN
  9. METHOTREXATE [Concomitant]
     Active Substance: METHOTREXATE
  10. PROAIR RESPICLICK [Concomitant]
     Active Substance: ALBUTEROL SULFATE
  11. LEVOTHYROXINE SODIUM [Concomitant]
     Active Substance: LEVOTHYROXINE SODIUM
  12. POTASSIUM CHLORIDE [Concomitant]
     Active Substance: POTASSIUM CHLORIDE
  13. HYDROXYCHLOROQUINE SULFATE [Concomitant]
     Active Substance: HYDROXYCHLOROQUINE SULFATE
  14. ALLOPURINOL [Concomitant]
     Active Substance: ALLOPURINOL
  15. ASPIRIN [Concomitant]
     Active Substance: ASPIRIN

REACTIONS (1)
  - Ocular hyperaemia [Unknown]
